FAERS Safety Report 16254400 (Version 1)
Quarter: 2019Q2

REPORT INFORMATION
  Report Type: Other
  Country: SA (occurrence: SA)
  Receive Date: 20190430
  Receipt Date: 20190430
  Transmission Date: 20190711
  Serious: Yes (Hospitalization, Other)
  Sender: FDA-Public Use
  Company Number: SA-ORCHID HEALTHCARE-2066422

PATIENT
  Age: 41 Year
  Sex: Female

DRUGS (1)
  1. CEFUROXIME AXETIL. [Suspect]
     Active Substance: CEFUROXIME AXETIL
     Indication: BLISTER
     Route: 065

REACTIONS (4)
  - Obliterative bronchiolitis [Unknown]
  - Stevens-Johnson syndrome [Unknown]
  - Lupus nephritis [Unknown]
  - Proteinuria [Unknown]
